FAERS Safety Report 4832461-8 (Version None)
Quarter: 2005Q4

REPORT INFORMATION
  Report Type: 
  Country: None (occurrence: None)
  Receive Date: 20051116
  Receipt Date: 20051102
  Transmission Date: 20060501
  Serious: Yes (Death)
  Sender: FDA-Public Use
  Company Number: 2005-DE-02346GD

PATIENT
  Sex: 0

DRUGS (5)
  1. SERTRALINE HCL [Suspect]
  2. COCAINE (COCAINE) [Suspect]
  3. OXYCODONE HCL [Suspect]
  4. DOXEPIN (DOXEPIN) [Suspect]
  5. LIDOCAINE HCL INJ [Suspect]

REACTIONS (4)
  - DRUG ABUSER [None]
  - DRUG INTERACTION [None]
  - DRUG TOXICITY [None]
  - VENTRICULAR HYPERTROPHY [None]
